FAERS Safety Report 18943872 (Version 1)
Quarter: 2021Q1

REPORT INFORMATION
  Report Type: Spontaneous
  Country: US (occurrence: US)
  Receive Date: 20210226
  Receipt Date: 20210226
  Transmission Date: 20210420
  Serious: No
  Sender: FDA-Public Use
  Company Number: US-ELI_LILLY_AND_COMPANY-US202102012535

PATIENT
  Sex: Female

DRUGS (1)
  1. TRULICITY [Suspect]
     Active Substance: DULAGLUTIDE
     Indication: PRODUCT USED FOR UNKNOWN INDICATION
     Dosage: 3 MG, UNKNOWN
     Route: 065
     Dates: end: 202102

REACTIONS (6)
  - Constipation [Unknown]
  - Abdominal distension [Unknown]
  - Vulvovaginal mycotic infection [Unknown]
  - Haemorrhoids [Unknown]
  - Abdominal pain [Unknown]
  - Mental disorder [Unknown]
